FAERS Safety Report 24686217 (Version 3)
Quarter: 2025Q1

REPORT INFORMATION
  Report Type: Spontaneous
  Country: US (occurrence: US)
  Receive Date: 20241202
  Receipt Date: 20250114
  Transmission Date: 20250409
  Serious: Yes (Hospitalization, Other)
  Sender: GLAXOSMITHKLINE
  Company Number: US-GSK-US2024148034

PATIENT

DRUGS (1)
  1. TRELEGY ELLIPTA [Suspect]
     Active Substance: FLUTICASONE FUROATE\UMECLIDINIUM BROMIDE\VILANTEROL TRIFENATATE
     Indication: Chronic obstructive pulmonary disease
     Dates: start: 20230614

REACTIONS (6)
  - Chronic obstructive pulmonary disease [Unknown]
  - Hypercapnia [Unknown]
  - Hospitalisation [Unknown]
  - Myocardial infarction [Recovered/Resolved]
  - Fall [Unknown]
  - Shoulder fracture [Unknown]
